FAERS Safety Report 6962686-7 (Version None)
Quarter: 2010Q3

REPORT INFORMATION
  Report Type: 
  Country: None (occurrence: None)
  Receive Date: 20100823
  Receipt Date: 20100614
  Transmission Date: 20110219
  Serious: No
  Sender: FDA-Public Use
  Company Number: 013661

PATIENT

DRUGS (6)
  1. CIMZIA [Suspect]
     Indication: CROHN'S DISEASE
     Dosage: (SUBCUTANEOUS)
     Route: 058
  2. FLUOXETINE [Concomitant]
  3. POTASSIUM [Concomitant]
  4. SMIVASTATIN [Concomitant]
  5. PRILOSEC [Concomitant]
  6. HYDROCHLORTHIAZID [Concomitant]

REACTIONS (1)
  - NEUROPATHY PERIPHERAL [None]
